FAERS Safety Report 9521745 (Version 1)
Quarter: 2013Q3

REPORT INFORMATION
  Report Type: Spontaneous
  Country: US (occurrence: None)
  Receive Date: 20130911
  Receipt Date: 20130911
  Transmission Date: 20140515
  Serious: No
  Sender: FDA-Public Use
  Company Number: AEUSA201300118

PATIENT
  Age: 49 Year
  Sex: Male
  Weight: 105 kg

DRUGS (8)
  1. GAMUNEX-C [Suspect]
     Indication: CHRONIC INFLAMMATORY DEMYELINATING POLYRADICULONEUROPATHY
     Route: 042
     Dates: start: 20121217
  2. OXYCODONE [Concomitant]
  3. PLAVIX [Concomitant]
  4. TOPROL [Concomitant]
  5. LISINOPRIL [Concomitant]
  6. METFORMIN [Concomitant]
  7. GLIPIRIDE [Concomitant]
  8. LANTUS [Concomitant]

REACTIONS (2)
  - Rash pruritic [None]
  - Rash [None]
